FAERS Safety Report 15345149 (Version 1)
Quarter: 2018Q3

REPORT INFORMATION
  Report Type: Spontaneous
  Country: GB (occurrence: GB)
  Receive Date: 20180903
  Receipt Date: 20180903
  Transmission Date: 20181010
  Serious: Yes (Death, Other)
  Sender: FDA-Public Use
  Company Number: PHHY2018GB088129

PATIENT
  Age: 44 Year
  Sex: Male
  Weight: 82 kg

DRUGS (3)
  1. CLARITHROMYCIN. [Suspect]
     Active Substance: CLARITHROMYCIN
     Indication: SKIN LESION
     Dosage: 500 MG, UNK
     Route: 048
     Dates: start: 20160124, end: 20160130
  2. HYDROXYCHLOROQUINE [Concomitant]
     Active Substance: HYDROXYCHLOROQUINE
     Indication: SYSTEMIC LUPUS ERYTHEMATOSUS
     Dosage: UNK
     Route: 065
  3. TEICOPLANIN [Concomitant]
     Active Substance: TEICOPLANIN
     Indication: SKIN LESION
     Route: 065

REACTIONS (7)
  - Pyrexia [Unknown]
  - Rash maculo-papular [Unknown]
  - Necrotising panniculitis [Unknown]
  - Type IV hypersensitivity reaction [Fatal]
  - Acute kidney injury [Unknown]
  - Acute lung injury [Unknown]
  - Chills [Unknown]

NARRATIVE: CASE EVENT DATE: 20160129
